FAERS Safety Report 5249038-5 (Version None)
Quarter: 2007Q1

REPORT INFORMATION
  Report Type: 
  Country: None (occurrence: None)
  Receive Date: 20070228
  Receipt Date: 20060710
  Transmission Date: 20070707
  Serious: No
  Sender: FDA-Public Use
  Company Number: US-GLAXOSMITHKLINE-A0608423A

PATIENT
  Age: 73 Year
  Sex: Male
  Weight: 82.7 kg

DRUGS (1)
  1. VALTREX [Suspect]
     Dosage: 3CAP PER DAY
     Dates: start: 20060131

REACTIONS (7)
  - ANTINUCLEAR ANTIBODY INCREASED [None]
  - DIARRHOEA [None]
  - DRUG INEFFECTIVE [None]
  - DYSPNOEA [None]
  - JOINT SWELLING [None]
  - OEDEMA PERIPHERAL [None]
  - VOMITING [None]
